FAERS Safety Report 23298864 (Version 2)
Quarter: 2024Q1

REPORT INFORMATION
  Report Type: Spontaneous
  Country: BE (occurrence: BE)
  Receive Date: 20231215
  Receipt Date: 20240104
  Transmission Date: 20240409
  Serious: Yes (Hospitalization, Other)
  Sender: FDA-Public Use
  Company Number: BE-ROCHE-2943249

PATIENT
  Age: 76 Year
  Sex: Male
  Weight: 109 kg

DRUGS (44)
  1. CARBOPLATIN [Suspect]
     Active Substance: CARBOPLATIN
     Indication: Small cell lung cancer extensive stage
     Dosage: 880 MILLIGRAM
     Route: 065
     Dates: start: 20210630
  2. CARBOPLATIN [Suspect]
     Active Substance: CARBOPLATIN
     Dosage: 670 MILLIGRAM
     Route: 065
     Dates: start: 20210722
  3. ETOPOSIDE [Suspect]
     Active Substance: ETOPOSIDE
     Indication: Small cell lung cancer extensive stage
     Dosage: 112 MILLIGRAM
     Route: 065
     Dates: start: 20210630
  4. ETOPOSIDE [Suspect]
     Active Substance: ETOPOSIDE
     Dosage: 312 MILLIGRAM
     Route: 065
     Dates: start: 20210722
  5. ATEZOLIZUMAB [Suspect]
     Active Substance: ATEZOLIZUMAB
     Indication: Small cell lung cancer extensive stage
     Dosage: 1200 MILLIGRAM (VISIT 1)
     Route: 042
     Dates: start: 20210722
  6. ATEZOLIZUMAB [Suspect]
     Active Substance: ATEZOLIZUMAB
     Dosage: 1200 MILLIGRAM
     Route: 042
     Dates: start: 20210630
  7. PALONOSETRON [Concomitant]
     Active Substance: PALONOSETRON
     Indication: Product used for unknown indication
     Dosage: 0.5 MILLIGRAM
     Route: 065
     Dates: start: 20210630, end: 20210630
  8. PALONOSETRON [Concomitant]
     Active Substance: PALONOSETRON
     Dosage: 0.5 MILLIGRAM
     Route: 065
     Dates: start: 20210722, end: 20210722
  9. PALONOSETRON [Concomitant]
     Active Substance: PALONOSETRON
     Dosage: 0.5 MILLIGRAM
     Route: 065
     Dates: start: 20210811, end: 20210811
  10. DEXAMETHASONE [Concomitant]
     Active Substance: DEXAMETHASONE
     Indication: Product used for unknown indication
     Dosage: 10 MILLIGRAM
     Route: 065
     Dates: start: 20210630, end: 20210630
  11. DEXAMETHASONE [Concomitant]
     Active Substance: DEXAMETHASONE
     Dosage: 10 MILLIGRAM
     Route: 065
     Dates: start: 20210630, end: 20210730
  12. DEXAMETHASONE [Concomitant]
     Active Substance: DEXAMETHASONE
     Dosage: 10 MILLIGRAM
     Route: 065
     Dates: start: 20210722, end: 20210722
  13. DEXAMETHASONE [Concomitant]
     Active Substance: DEXAMETHASONE
     Dosage: 10 MILLIGRAM
     Route: 065
     Dates: start: 20210811, end: 20210811
  14. STEOVIT FORTE [Concomitant]
     Indication: Prophylaxis
     Dosage: UNK, ONCE A DAY
     Route: 065
     Dates: start: 20210618
  15. CARBOPLATIN [Concomitant]
     Active Substance: CARBOPLATIN
     Indication: Neoplasm malignant
     Dosage: UNK
     Route: 065
  16. ACETYLCYSTEINE [Concomitant]
     Active Substance: ACETYLCYSTEINE
     Indication: Product used for unknown indication
     Dosage: UNK
     Route: 065
     Dates: start: 20210623
  17. JARDIANCE [Concomitant]
     Active Substance: EMPAGLIFLOZIN
     Indication: Product used for unknown indication
     Dosage: UNK
     Route: 065
     Dates: start: 20180627
  18. METFORMIN [Concomitant]
     Active Substance: METFORMIN HYDROCHLORIDE
     Indication: Product used for unknown indication
     Dosage: UNK
     Route: 065
     Dates: start: 20210712
  19. METFORMIN [Concomitant]
     Active Substance: METFORMIN HYDROCHLORIDE
     Dosage: UNK
     Route: 065
     Dates: start: 20210810
  20. XANAX [Concomitant]
     Active Substance: ALPRAZOLAM
     Indication: Sedation
     Dosage: UNK
     Route: 065
     Dates: start: 202108
  21. ATROVENT [Concomitant]
     Active Substance: IPRATROPIUM BROMIDE
     Indication: Product used for unknown indication
     Dosage: UNK
     Route: 065
     Dates: start: 20210623
  22. ACTRAPID [Concomitant]
     Active Substance: INSULIN HUMAN
     Indication: Product used for unknown indication
     Dosage: UNK
     Route: 065
     Dates: start: 20210618
  23. NETUPITANT [Concomitant]
     Active Substance: NETUPITANT
     Indication: Product used for unknown indication
     Dosage: 300 MILLIGRAM
     Route: 065
     Dates: start: 20210630, end: 20210630
  24. NETUPITANT [Concomitant]
     Active Substance: NETUPITANT
     Dosage: 300 MILLIGRAM
     Route: 065
     Dates: start: 20210722, end: 20210722
  25. NETUPITANT [Concomitant]
     Active Substance: NETUPITANT
     Dosage: 300 MILLIGRAM
     Route: 065
     Dates: start: 20210811, end: 20210811
  26. PRAZEPAM [Concomitant]
     Active Substance: PRAZEPAM
     Indication: Product used for unknown indication
     Dosage: UNK
     Route: 065
     Dates: start: 20210811
  27. ENOXAPARIN SODIUM [Concomitant]
     Active Substance: ENOXAPARIN SODIUM
     Indication: Cardiovascular event prophylaxis
     Dosage: UNK (0.5 DAYS)
     Route: 065
     Dates: start: 20210624, end: 20210703
  28. ENOXAPARIN SODIUM [Concomitant]
     Active Substance: ENOXAPARIN SODIUM
     Dosage: UNK, ONCE A DAY
     Route: 065
     Dates: start: 20210704, end: 20210705
  29. ENOXAPARIN SODIUM [Concomitant]
     Active Substance: ENOXAPARIN SODIUM
     Dosage: UNK, ONCE A DAY
     Route: 065
     Dates: start: 20210707, end: 20210712
  30. ENOXAPARIN SODIUM [Concomitant]
     Active Substance: ENOXAPARIN SODIUM
     Dosage: UNK, ONCE A DAY
     Route: 065
     Dates: start: 20210719, end: 20210721
  31. LIPEGFILGRASTIM [Concomitant]
     Active Substance: LIPEGFILGRASTIM
     Indication: Product used for unknown indication
     Dosage: UNK
     Route: 065
     Dates: start: 20210716, end: 20210716
  32. LIPEGFILGRASTIM [Concomitant]
     Active Substance: LIPEGFILGRASTIM
     Dosage: UNK
     Route: 065
     Dates: start: 20210814, end: 20210814
  33. ETOPOSIDE [Concomitant]
     Active Substance: ETOPOSIDE
     Indication: Product used for unknown indication
     Dosage: UNK
     Route: 065
  34. Sterop k [Concomitant]
     Indication: Product used for unknown indication
     Dosage: UNK
     Route: 065
     Dates: start: 20210718
  35. FOLIC ACID [Concomitant]
     Active Substance: FOLIC ACID
     Indication: Prophylaxis
     Dosage: UNK
     Route: 065
     Dates: start: 20210629
  36. SPIRONOLACTONE [Concomitant]
     Active Substance: SPIRONOLACTONE
     Indication: Product used for unknown indication
     Dosage: UNK
     Route: 065
     Dates: start: 20210701
  37. FENTANYL [Concomitant]
     Active Substance: FENTANYL\FENTANYL CITRATE
     Indication: Sedation
     Dosage: UNK
     Route: 065
     Dates: start: 20210808
  38. BUMETANIDE [Concomitant]
     Active Substance: BUMETANIDE
     Indication: Product used for unknown indication
     Dosage: UNK, ONCE A DAY
     Route: 065
     Dates: start: 20210701, end: 20210706
  39. BUMETANIDE [Concomitant]
     Active Substance: BUMETANIDE
     Dosage: UNK, ONCE A DAY
     Route: 065
     Dates: start: 20210707, end: 20210715
  40. BUMETANIDE [Concomitant]
     Active Substance: BUMETANIDE
     Dosage: UNK, ONCE A DAY
     Route: 065
     Dates: start: 20210723, end: 20210726
  41. OXYGEN [Concomitant]
     Active Substance: OXYGEN
     Indication: Product used for unknown indication
     Dosage: UNK
     Route: 065
     Dates: start: 202106
  42. POTASSIUM CHLORIDE [Concomitant]
     Active Substance: POTASSIUM CHLORIDE
     Indication: Product used for unknown indication
     Dosage: UNK
     Route: 065
  43. PIPERACILLIN SODIUM\TAZOBACTAM SODIUM [Concomitant]
     Active Substance: PIPERACILLIN SODIUM\TAZOBACTAM SODIUM
     Indication: Product used for unknown indication
     Dosage: UNK
     Route: 065
     Dates: start: 20210713, end: 20210720
  44. PIPERACILLIN SODIUM\TAZOBACTAM SODIUM [Concomitant]
     Active Substance: PIPERACILLIN SODIUM\TAZOBACTAM SODIUM
     Dosage: UNK
     Route: 065
     Dates: start: 20210712, end: 20210712

REACTIONS (23)
  - Thrombocytopenia [Recovered/Resolved]
  - Epistaxis [Recovered/Resolved]
  - Neutrophil count decreased [Recovered/Resolved]
  - Hypokalaemia [Recovered/Resolved]
  - Decreased appetite [Not Recovered/Not Resolved]
  - Anaemia [Not Recovered/Not Resolved]
  - Blood bilirubin increased [Recovered/Resolved]
  - Haematuria [Recovered/Resolved]
  - Hypomagnesaemia [Recovered/Resolved]
  - Diarrhoea [Recovered/Resolved]
  - Chest pain [Recovered/Resolved]
  - Nausea [Recovered/Resolved]
  - Haemoptysis [Recovered/Resolved]
  - Nasal congestion [Recovered/Resolved]
  - Aspartate aminotransferase increased [Recovered/Resolved]
  - Productive cough [Recovered/Resolved]
  - Abdominal pain [Recovered/Resolved]
  - Asthenia [Recovered/Resolved]
  - Blood alkaline phosphatase increased [Recovered/Resolved]
  - Oedema peripheral [Recovered/Resolved]
  - Stasis dermatitis [Recovered/Resolved]
  - Weight decreased [Recovered/Resolved]
  - C-reactive protein increased [Recovered/Resolved]

NARRATIVE: CASE EVENT DATE: 20210701
